FAERS Safety Report 15229761 (Version 2)
Quarter: 2019Q3

REPORT INFORMATION
  Report Type: Spontaneous
  Country: US (occurrence: US)
  Receive Date: 20180802
  Receipt Date: 20190805
  Transmission Date: 20191004
  Serious: Yes (Other)
  Sender: FDA-Public Use
  Company Number: US-ACCORD-062663

PATIENT
  Age: 63 Year
  Sex: Female
  Weight: 113.4 kg

DRUGS (17)
  1. DOCETAXEL ACCORD [Suspect]
     Active Substance: DOCETAXEL
     Indication: BREAST CANCER
     Dosage: ONLY ONE CYCLE RECEIVED
     Route: 042
     Dates: start: 20150408, end: 20150429
  2. ETODOLAC. [Concomitant]
     Active Substance: ETODOLAC
     Dosage: STRENGTH: 400 MG
     Route: 048
  3. MECLIZINE [Concomitant]
     Active Substance: MECLIZINE HYDROCHLORIDE
  4. TRAMADOL. [Concomitant]
     Active Substance: TRAMADOL
  5. HYDROCHLOROTHIAZIDE/TRIAMTERENE [Concomitant]
     Dosage: STRENGTH: 25 MG-37.5 MG??0.5 TABLET DAILY
     Route: 048
  6. METFORMIN [Concomitant]
     Active Substance: METFORMIN HYDROCHLORIDE
     Dosage: STRENGTH: 500 MG
     Route: 048
  7. AMLODIPINE [Concomitant]
     Active Substance: AMLODIPINE BESYLATE
     Dosage: STRENGTH: 5 MG
     Route: 048
  8. ATORVASTATIN [Concomitant]
     Active Substance: ATORVASTATIN
     Dosage: STRENGTH: 20 MG
     Route: 048
  9. CLONAZEPAM. [Concomitant]
     Active Substance: CLONAZEPAM
  10. GABAPENTIN. [Concomitant]
     Active Substance: GABAPENTIN
     Dosage: STRENGTH: 300 MG
     Route: 048
  11. AMBIEN [Concomitant]
     Active Substance: ZOLPIDEM TARTRATE
     Dosage: STRENGTH: 5 MG
     Route: 048
  12. VERAPAMIL [Concomitant]
     Active Substance: VERAPAMIL HYDROCHLORIDE
  13. METOPROLOL. [Concomitant]
     Active Substance: METOPROLOL
     Dosage: STRENGTH: 25 MG
     Route: 048
  14. HYDRALAZINE [Concomitant]
     Active Substance: HYDRALAZINE HYDROCHLORIDE
     Dosage: STRENGTH: 25 MG
     Route: 048
  15. CYCLOBENZAPRINE. [Concomitant]
     Active Substance: CYCLOBENZAPRINE
     Dosage: STRENGTH: 10 MG
     Route: 048
  16. OMEPRAZOLE. [Concomitant]
     Active Substance: OMEPRAZOLE
     Dosage: STRENGTH: 20 MG
     Route: 048
  17. WARFARIN [Concomitant]
     Active Substance: WARFARIN
     Dosage: STRENGTH: 1 MG 1 TABLET DAILY??STRENGTH: 2 MG 2 TABLET DAILY
     Route: 048

REACTIONS (1)
  - Alopecia [Not Recovered/Not Resolved]

NARRATIVE: CASE EVENT DATE: 20151115
